FAERS Safety Report 4724923-9 (Version None)
Quarter: 2005Q3

REPORT INFORMATION
  Report Type: 
  Country: None (occurrence: None)
  Receive Date: 20050720
  Receipt Date: 20050720
  Transmission Date: 20060218
  Serious: Yes (Hospitalization)
  Sender: FDA-Public Use
  Company Number: None

PATIENT
  Sex: Male

DRUGS (14)
  1. CLOPIDOGREL    75 MG [Suspect]
     Indication: CORONARY ARTERY DISEASE
     Dosage: 75 MG    DAILY   ORAL
     Route: 048
  2. ASPIRIN [Suspect]
     Indication: CORONARY ARTERY DISEASE
     Dosage: 325 MG    DAILY   ORAL
     Route: 048
  3. ISOSORBIDE MONONITRATE [Concomitant]
  4. ALBUTEROL [Concomitant]
  5. LORAZEPAM [Concomitant]
  6. OMEPRAZOLE [Concomitant]
  7. DIPHENHYDRAMINE HCL [Concomitant]
  8. MORPHINE [Concomitant]
  9. INSULIN [Concomitant]
  10. METOPROLOL [Concomitant]
  11. DIGOXIN [Concomitant]
  12. METOLAZONE [Concomitant]
  13. ATORVASTATIN CALCIUM [Concomitant]
  14. FUROSEMIDE [Concomitant]

REACTIONS (1)
  - UPPER GASTROINTESTINAL HAEMORRHAGE [None]
